FAERS Safety Report 6817018-1 (Version None)
Quarter: 2010Q3

REPORT INFORMATION
  Report Type: 
  Country: None (occurrence: None)
  Receive Date: 20100706
  Receipt Date: 20100625
  Transmission Date: 20110219
  Serious: Yes (Hospitalization, Disabling)
  Sender: FDA-Public Use
  Company Number: GXKR2010GB07119

PATIENT
  Age: 55 Year
  Sex: Female
  Weight: 66.4 kg

DRUGS (5)
  1. VENLAFAXINE HCL [Suspect]
     Indication: DEPRESSION
     Dosage: 150 MG, UNK
     Route: 048
     Dates: start: 20100421
  2. ANTIHYPERTENSIVES [Concomitant]
     Indication: HYPERTENSION
     Route: 048
  3. FLUOXETINE [Concomitant]
     Indication: DEPRESSION
     Dosage: 80 MG, UNK
     Route: 048
     Dates: end: 20100428
  4. RISPERDAL [Concomitant]
     Indication: PARANOIA
     Dosage: 2 MG, UNK
     Route: 048
     Dates: start: 20090101
  5. STELAZINE [Concomitant]
     Indication: PARANOIA
     Dosage: 2 MG, UNK
     Route: 048
     Dates: start: 20090101

REACTIONS (3)
  - ABDOMINAL PAIN UPPER [None]
  - ACTIVITIES OF DAILY LIVING IMPAIRED [None]
  - PAIN IN EXTREMITY [None]
